FAERS Safety Report 8978938 (Version 1)
Quarter: 2012Q4

REPORT INFORMATION
  Report Type: 
  Country: US (occurrence: US)
  Receive Date: 20121220
  Receipt Date: 20121220
  Transmission Date: 20130627
  Serious: Yes (Other)
  Sender: FDA-Public Use
  Company Number: US-ROXANE LABORATORIES, INC.-2012-BI-01547GD

PATIENT
  Age: 25 Year
  Sex: Male

DRUGS (14)
  1. OMEPRAZOLE [Suspect]
     Indication: STRESS ULCER
  2. OMEPRAZOLE [Suspect]
  3. METHOTREXATE [Suspect]
     Indication: SPINDLE CELL SARCOMA
     Dosage: 20 mg
  4. METHOTREXATE [Suspect]
     Dosage: high dose
  5. CISPLATIN [Concomitant]
     Indication: SPINDLE CELL SARCOMA
  6. DOXORUBICIN [Concomitant]
     Indication: SPINDLE CELL SARCOMA
  7. DEXAMETHASONE [Concomitant]
     Indication: TENSION HEADACHE
     Dosage: low-dose
  8. HYDROMORPHONE [Concomitant]
  9. PROCHLORPERAZINE [Concomitant]
  10. LANSOPRAZOLE [Concomitant]
     Indication: STRESS ULCER
  11. LEUCOVORIN [Concomitant]
     Indication: SPINDLE CELL SARCOMA
     Dosage: 60 mg
     Route: 042
  12. LEUCOVORIN [Concomitant]
     Dosage: 60 mg
     Route: 048
  13. LEUCOVORIN [Concomitant]
     Dosage: dose increase to 120 mg/mE2 every 6 hours
     Route: 042
  14. LEUCOVORIN [Concomitant]
     Dosage: dose increase to 500 mg/mE2 every 6 hours
     Route: 042

REACTIONS (7)
  - Toxicity to various agents [Unknown]
  - Drug interaction [Unknown]
  - Grand mal convulsion [Recovered/Resolved]
  - Renal failure acute [Recovered/Resolved]
  - Mucosal inflammation [Unknown]
  - Thrombocytopenia [Not Recovered/Not Resolved]
  - Oral candidiasis [Unknown]
